FAERS Safety Report 5768920-3 (Version None)
Quarter: 2008Q2

REPORT INFORMATION
  Report Type: 
  Country: None (occurrence: None)
  Receive Date: 20080612
  Receipt Date: 20080314
  Transmission Date: 20081010
  Serious: No
  Sender: FDA-Public Use
  Company Number: US-ABBOTT-08P-163-0442771-00

PATIENT
  Sex: Male
  Weight: 104.42 kg

DRUGS (4)
  1. HUMIRA [Suspect]
     Indication: PSORIATIC ARTHROPATHY
     Route: 058
     Dates: start: 20051001, end: 20060101
  2. HUMIRA [Suspect]
     Indication: PSORIASIS
     Route: 058
     Dates: start: 20080313
  3. ETANERCEPT [Concomitant]
     Indication: PSORIASIS
     Route: 048
     Dates: start: 20060101, end: 20080101
  4. PREDNISONE TAB [Concomitant]
     Indication: PSORIASIS
     Route: 048
     Dates: start: 20080301

REACTIONS (4)
  - ARTHRALGIA [None]
  - PROCEDURAL COMPLICATION [None]
  - PRURITUS [None]
  - PSORIASIS [None]
